FAERS Safety Report 7052593-6 (Version None)
Quarter: 2010Q4

REPORT INFORMATION
  Report Type: 
  Country: None (occurrence: None)
  Receive Date: 20101019
  Receipt Date: 20101007
  Transmission Date: 20110411
  Serious: Yes (Other)
  Sender: FDA-Public Use
  Company Number: DE-PFIZER INC-2010127421

PATIENT
  Age: 76 Year
  Sex: Male

DRUGS (1)
  1. TOVIAZ [Suspect]
     Dosage: 8 MG DAILY
     Dates: start: 20100201

REACTIONS (2)
  - AGEUSIA [None]
  - ANOSMIA [None]
